FAERS Safety Report 23099915 (Version 1)
Quarter: 2023Q4

REPORT INFORMATION
  Report Type: Spontaneous
  Country: US (occurrence: None)
  Receive Date: 20231020
  Receipt Date: 20231020
  Transmission Date: 20240109
  Serious: Yes (Hospitalization)
  Sender: FDA-Public Use
  Company Number: None

PATIENT
  Age: 82 Year
  Sex: Male
  Weight: 118 kg

DRUGS (1)
  1. ENOXAPARIN [Suspect]
     Active Substance: ENOXAPARIN
     Dosage: FREQUENCY : TWICE A DAY;?
     Route: 058
     Dates: start: 20230303, end: 20230306

REACTIONS (8)
  - Intra-abdominal haematoma [None]
  - COVID-19 [None]
  - Respiratory syncytial virus infection [None]
  - Pneumonia bacterial [None]
  - Sepsis [None]
  - Atrial fibrillation [None]
  - Fibrin D dimer increased [None]
  - Acute kidney injury [None]

NARRATIVE: CASE EVENT DATE: 20230306
